FAERS Safety Report 10796853 (Version 2)
Quarter: 2015Q1

REPORT INFORMATION
  Report Type: Spontaneous
  Country: CN (occurrence: CN)
  Receive Date: 20150216
  Receipt Date: 20150311
  Transmission Date: 20150721
  Serious: Yes (Death, Other)
  Sender: FDA-Public Use
  Company Number: CN-UCBSA-2015003582

PATIENT
  Age: 3 Month
  Sex: Female

DRUGS (4)
  1. KEPPRA [Suspect]
     Active Substance: LEVETIRACETAM
     Indication: ENCEPHALOPATHY
  2. KEPPRA [Suspect]
     Active Substance: LEVETIRACETAM
     Indication: OFF LABEL USE
     Dosage: 0.65 ML, 2X/DAY (BID)
     Route: 048
     Dates: start: 20150130, end: 20150202
  3. KEPPRA [Suspect]
     Active Substance: LEVETIRACETAM
     Indication: ENCEPHALOPATHY
  4. VITAMIN B6 [Concomitant]
     Active Substance: PYRIDOXINE HYDROCHLORIDE
     Indication: PRODUCT USED FOR UNKNOWN INDICATION
     Dosage: UNK
     Route: 042
     Dates: start: 20150130, end: 20150202

REACTIONS (5)
  - Brain death [Unknown]
  - Off label use [Unknown]
  - Respiratory arrest [Fatal]
  - Cardiac arrest [Fatal]
  - Brain oedema [Unknown]

NARRATIVE: CASE EVENT DATE: 20150202
